FAERS Safety Report 6042984-4 (Version None)
Quarter: 2009Q1

REPORT INFORMATION
  Report Type: 
  Country: None (occurrence: None)
  Receive Date: 20090119
  Receipt Date: 20090106
  Transmission Date: 20090719
  Serious: Yes (Other)
  Sender: FDA-Public Use
  Company Number: BR-ROCHE-606764

PATIENT
  Age: 70 Year
  Sex: Female
  Weight: 69 kg

DRUGS (5)
  1. BONIVA [Suspect]
     Indication: OSTEOPOROSIS
     Route: 048
     Dates: start: 20080201, end: 20080101
  2. BONIVA [Suspect]
     Route: 048
     Dates: start: 20081203
  3. HUMULIN N [Concomitant]
  4. VYTORIN [Concomitant]
     Indication: BLOOD CHOLESTEROL ABNORMAL
     Dosage: STRENGTH: 10-20 MG
  5. CALDE [Concomitant]

REACTIONS (2)
  - FALL [None]
  - OPEN FRACTURE [None]
